FAERS Safety Report 8133610-9 (Version None)
Quarter: 2012Q1

REPORT INFORMATION
  Report Type: 
  Country: None (occurrence: None)
  Receive Date: 20120213
  Receipt Date: 20120130
  Transmission Date: 20120608
  Serious: Yes (Life-Threatening, Hospitalization)
  Sender: FDA-Public Use
  Company Number: ES-CELGENEUS-144-50794-12013140

PATIENT
  Sex: Male
  Weight: 65 kg

DRUGS (6)
  1. ESOMEPRAZOLE [Concomitant]
     Indication: PROPHYLAXIS
     Dosage: 20 MILLIGRAM
     Route: 065
  2. VIDAZA [Suspect]
     Dosage: 50 MILLIGRAM
     Route: 065
     Dates: start: 20080303, end: 20080309
  3. NITROGLYCERIN [Concomitant]
     Indication: ACUTE MYOCARDIAL INFARCTION
     Dosage: 10 MILLIGRAM
     Route: 065
     Dates: start: 20080101
  4. ATENOLOL [Concomitant]
     Indication: ACUTE MYOCARDIAL INFARCTION
     Dosage: 50 MILLIGRAM
     Route: 065
     Dates: start: 20080101
  5. ISOSORBIDE MONONITRATE [Concomitant]
     Indication: ACUTE MYOCARDIAL INFARCTION
     Dosage: 60 MILLIGRAM
     Route: 065
     Dates: start: 20080101
  6. ASPIRIN [Concomitant]
     Indication: ACUTE MYOCARDIAL INFARCTION
     Dosage: 250 MILLIGRAM
     Route: 065
     Dates: start: 20080101

REACTIONS (2)
  - SEPTIC SHOCK [None]
  - NEUTROPENIA [None]
